FAERS Safety Report 12158737 (Version 1)
Quarter: 2016Q1

REPORT INFORMATION
  Report Type: Spontaneous
  Country: US (occurrence: US)
  Receive Date: 20160308
  Receipt Date: 20160308
  Transmission Date: 20160526
  Serious: No
  Sender: FDA-Public Use
  Company Number: US-JNJFOC-20160124067

PATIENT
  Sex: Female

DRUGS (2)
  1. TYLENOL EXTRA STRENGTH [Suspect]
     Active Substance: ACETAMINOPHEN
     Route: 048
  2. TYLENOL EXTRA STRENGTH [Suspect]
     Active Substance: ACETAMINOPHEN
     Indication: PRODUCT USED FOR UNKNOWN INDICATION
     Dosage: 8-10 PER DAY
     Route: 048

REACTIONS (6)
  - Product lot number issue [Unknown]
  - Therapy change [Unknown]
  - Product expiration date issue [Unknown]
  - Drug ineffective [Unknown]
  - Product package associated injury [Unknown]
  - Product container issue [Unknown]
